FAERS Safety Report 8789021 (Version 4)
Quarter: 2014Q3

REPORT INFORMATION
  Report Type: Spontaneous
  Country: FR (occurrence: FR)
  Receive Date: 20120917
  Receipt Date: 20140716
  Transmission Date: 20150326
  Serious: Yes (Hospitalization)
  Sender: FDA-Public Use
  Company Number: FR-009507513-1209FRA003259

PATIENT
  Age: 50 Year
  Sex: Male
  Weight: 75 kg

DRUGS (10)
  1. COPEGUS [Suspect]
     Active Substance: RIBAVIRIN
     Indication: CHRONIC HEPATITIS C
     Dosage: 1200 MG, QD
     Route: 048
     Dates: start: 20110627
  2. DAFALGAN [Concomitant]
     Active Substance: ACETAMINOPHEN
     Indication: INFLUENZA LIKE ILLNESS
     Dosage: 500 MG, PRN
     Dates: start: 20110627
  3. STILNOX [Concomitant]
     Active Substance: ZOLPIDEM TARTRATE
     Indication: INSOMNIA
     Dosage: 10 MG, QD
     Dates: start: 20111114
  4. AERIUS [Concomitant]
     Active Substance: DESLORATADINE
     Indication: PRURITUS
     Dosage: 10 MG, QD
     Dates: start: 20120206
  5. PEGASYS [Suspect]
     Active Substance: PEGINTERFERON ALFA-2A
     Indication: CHRONIC HEPATITIS C
     Dosage: 180 MICROGRAM, QW
     Route: 058
     Dates: start: 20110627
  6. ALLOPURINOL. [Concomitant]
     Active Substance: ALLOPURINOL
     Indication: PRURITUS
     Dosage: 2 DF, QD
     Dates: start: 20120109
  7. VICTRELIS [Suspect]
     Active Substance: BOCEPREVIR
     Indication: CHRONIC HEPATITIS C
     Dosage: 800 MG, Q8H
     Route: 048
     Dates: start: 20110722
  8. LIPANTHYL [Suspect]
     Active Substance: FENOFIBRATE
     Indication: HYPERTRIGLYCERIDAEMIA
     Dosage: 150 MG, QD
     Dates: start: 20110919
  9. STILNOX [Concomitant]
     Active Substance: ZOLPIDEM TARTRATE
     Indication: ANXIETY
     Dosage: 25 MG, QD
     Dates: start: 20120206
  10. ARTIFICIAL TEARS (BENZALKONIUM CHLORIDE (+) GLYCERIN (+) PROPYLENE GLY [Concomitant]
     Indication: DRY EYE
     Dosage: UNK
     Dates: start: 20120206

REACTIONS (4)
  - Head titubation [Unknown]
  - Malformation venous [Not Recovered/Not Resolved]
  - Cognitive disorder [Unknown]
  - Cerebral microhaemorrhage [Not Recovered/Not Resolved]

NARRATIVE: CASE EVENT DATE: 20120222
